FAERS Safety Report 15419456 (Version 2)
Quarter: 2019Q1

REPORT INFORMATION
  Report Type: Spontaneous
  Country: PT (occurrence: PT)
  Receive Date: 20180924
  Receipt Date: 20190110
  Transmission Date: 20190417
  Serious: Yes (Hospitalization, Disabling, Other)
  Sender: FDA-Public Use
  Company Number: PT-BAYER-2018-173149

PATIENT
  Age: 55 Year
  Sex: Male

DRUGS (4)
  1. DICLOFENAC [Suspect]
     Active Substance: DICLOFENAC
     Indication: ARTHRALGIA
  2. NAPROXEN SODIUM ({= 220 MG) [Suspect]
     Active Substance: NAPROXEN SODIUM
     Indication: ARTHRALGIA
  3. METHOTREXATE. [Suspect]
     Active Substance: METHOTREXATE
     Indication: ARTHRALGIA
     Dosage: 20 MG, OW
     Route: 048
  4. ETANERCEPT [Suspect]
     Active Substance: ETANERCEPT
     Indication: ARTHRALGIA

REACTIONS (11)
  - Nephrotic syndrome [Unknown]
  - Hypoalbuminaemia [Unknown]
  - Amyloidosis [Unknown]
  - Oedema peripheral [Unknown]
  - Hypoproteinaemia [Unknown]
  - Hypertriglyceridaemia [Unknown]
  - Microalbuminuria [Unknown]
  - Hypercholesterolaemia [Unknown]
  - Periorbital oedema [Unknown]
  - Treatment noncompliance [Unknown]
  - Proteinuria [Unknown]
